FAERS Safety Report 6063501-9 (Version None)
Quarter: 2009Q1

REPORT INFORMATION
  Report Type: 
  Country: None (occurrence: None)
  Receive Date: 20090203
  Receipt Date: 20090202
  Transmission Date: 20090719
  Serious: Yes (Other)
  Sender: FDA-Public Use
  Company Number: IL-ROXANE LABORATORIES, INC.-2009-RO-00100RO

PATIENT
  Age: 48 Year
  Sex: Female

DRUGS (5)
  1. METHOTREXATE [Suspect]
     Indication: PSORIATIC ARTHROPATHY
     Route: 048
  2. BROAD SPECTRUM ANTIBIOTICS [Concomitant]
     Indication: LUNG INFILTRATION
  3. PREDNISONE [Concomitant]
     Indication: PSORIATIC ARTHROPATHY
     Dosage: 10MG
  4. AZATHIOPRINE [Concomitant]
     Indication: PSORIATIC ARTHROPATHY
     Dosage: 100MG
  5. ASPIRIN [Concomitant]
     Indication: PSORIATIC ARTHROPATHY
     Dosage: 100MG

REACTIONS (9)
  - COUGH [None]
  - DISEASE PROGRESSION [None]
  - DYSPNOEA [None]
  - DYSPNOEA EXERTIONAL [None]
  - FATIGUE [None]
  - PLEURAL EFFUSION [None]
  - PULMONARY FUNCTION TEST DECREASED [None]
  - RHEUMATOID NODULE [None]
  - SEROLOGY ABNORMAL [None]
